FAERS Safety Report 11329139 (Version 2)
Quarter: 2016Q4

REPORT INFORMATION
  Report Type: Report from Study
  Country: US (occurrence: US)
  Receive Date: 20150803
  Receipt Date: 20161006
  Transmission Date: 20170206
  Serious: Yes (Death, Hospitalization, Other)
  Sender: FDA-Public Use
  Company Number: US-ROCHE-1552353

PATIENT
  Age: 78 Year
  Sex: Female
  Weight: 61 kg

DRUGS (6)
  1. VELIPARIB [Suspect]
     Active Substance: VELIPARIB
     Indication: OVARIAN EPITHELIAL CANCER
     Dosage: RECEIVED THERAPIES ON ON 12/NOV/2014, 03/DEC/2014, 31/DEC/2016, 22/JAN/2015, 11/FEB/2015, 04/MAR/201
     Route: 048
     Dates: start: 20141112
  2. BEVACIZUMAB [Suspect]
     Active Substance: BEVACIZUMAB
     Indication: OVARIAN EPITHELIAL CANCER
     Dosage: RECEIVED THERAPIES ON ON  31/DEC/2016, 22/JAN/2015, 11/FEB/2015, 04/MAR/2015
     Route: 042
     Dates: start: 20141203
  3. CARBOPLATIN. [Suspect]
     Active Substance: CARBOPLATIN
     Indication: OVARIAN EPITHELIAL CANCER
     Dosage: AUC = 6, LAST DOSE PRIOR TO EVENT ON 11/FEB/2015.
     Route: 042
     Dates: start: 20141112, end: 20150211
  4. PACLITAXEL. [Suspect]
     Active Substance: PACLITAXEL
     Indication: OVARIAN EPITHELIAL CANCER
     Dosage: LAST DOSE PRIOR TO EVENT ON 11/FEB/2015.
     Route: 042
     Dates: start: 20141112, end: 20150211
  5. BEVACIZUMAB [Suspect]
     Active Substance: BEVACIZUMAB
     Route: 042
     Dates: end: 20150506
  6. VELIPARIB [Suspect]
     Active Substance: VELIPARIB
     Route: 048
     Dates: start: 20150209

REACTIONS (9)
  - Neutrophil count decreased [Unknown]
  - Syncope [Unknown]
  - Dehydration [Unknown]
  - Chondrocalcinosis pyrophosphate [Unknown]
  - Anaemia [Unknown]
  - White blood cell count decreased [Unknown]
  - Embolism [Fatal]
  - Platelet count decreased [Unknown]
  - Dehydration [Unknown]

NARRATIVE: CASE EVENT DATE: 20150217
